FAERS Safety Report 7387230-4 (Version None)
Quarter: 2011Q1

REPORT INFORMATION
  Report Type: 
  Country: None (occurrence: None)
  Receive Date: 20110331
  Receipt Date: 20110321
  Transmission Date: 20110831
  Serious: Yes (Hospitalization)
  Sender: FDA-Public Use
  Company Number: US-NAPPMUNDI-USA-2010-0049697

PATIENT
  Sex: Female

DRUGS (2)
  1. OXYCODONE HCL [Concomitant]
     Indication: BREAKTHROUGH PAIN
     Dosage: 10 MG, UNK
  2. OXYCONTIN [Suspect]
     Indication: PRODUCT USED FOR UNKNOWN INDICATION
     Dosage: 30 MG, TID
     Dates: start: 20101004

REACTIONS (8)
  - MALAISE [None]
  - INADEQUATE ANALGESIA [None]
  - FEELING ABNORMAL [None]
  - SEDATION [None]
  - NAUSEA [None]
  - DRUG WITHDRAWAL SYNDROME [None]
  - THERAPEUTIC RESPONSE DELAYED [None]
  - GASTROINTESTINAL DISORDER [None]
